FAERS Safety Report 24058785 (Version 1)
Quarter: 2024Q3

REPORT INFORMATION
  Report Type: Report from Study
  Country: DE (occurrence: DE)
  Receive Date: 20240708
  Receipt Date: 20240708
  Transmission Date: 20241016
  Serious: Yes (Other)
  Sender: NORDIC PHARMA
  Company Number: DE-ABBVIE-5553413

PATIENT
  Age: 60 Year
  Sex: Female

DRUGS (6)
  1. METHOTREXATE [Suspect]
     Active Substance: METHOTREXATE
     Indication: Product used for unknown indication
     Dosage: MTX?FORM STRENGTH: 15 MILLIGRAM,?START DATE TEXT: BETWEEN23-SEP-2016-08-NOV-2016?STOP DATE TEXT: ...
     Route: 065
  2. METHOTREXATE [Suspect]
     Active Substance: METHOTREXATE
     Indication: Product used for unknown indication
     Dosage: MTX?FORM STRENGTH: 17.5 MILLIGRAM,?START DATE TEXT: BETWEEN08-NOV-2016-04-MAY-2017?STOP DATE TEXT...
     Route: 065
  3. METHOTREXATE [Suspect]
     Active Substance: METHOTREXATE
     Indication: Product used for unknown indication
     Dosage: FORM STRENGTH: 10 MILLIGRAM,?START DATE TEXT: BEFORE 10-JUN-2016?STOP DATE TEXT: BETWEEN23-SEP-20...
     Route: 065
  4. METHOTREXATE [Suspect]
     Active Substance: METHOTREXATE
     Indication: Product used for unknown indication
     Dosage: MTX?FORM STRENGTH: 20 MILLIGRAM,?START DATE TEXT: BETWEEN04-MAY-2017-14-NOV-2017?STOP DATE TEXT: ...
     Route: 065
  5. METHOTREXATE [Suspect]
     Active Substance: METHOTREXATE
     Indication: Product used for unknown indication
     Dosage: MTX?FORM STRENGTH: 15 MILLIGRAM,?START DATE TEXT: BETWEEN18-MAY-2020-12-NOV-2020
     Route: 065
  6. RINVOQ [Concomitant]
     Active Substance: UPADACITINIB
     Indication: Rheumatoid arthritis
     Route: 048
     Dates: start: 202111

REACTIONS (4)
  - Squamous cell carcinoma [Not Recovered/Not Resolved]
  - Ulcer [Not Recovered/Not Resolved]
  - Pulmonary mass [Unknown]
  - Oral herpes [Unknown]

NARRATIVE: CASE EVENT DATE: 20230902
